FAERS Safety Report 9688482 (Version 2)
Quarter: 2016Q4

REPORT INFORMATION
  Report Type: Spontaneous
  Country: US (occurrence: US)
  Receive Date: 20131114
  Receipt Date: 20161118
  Transmission Date: 20170207
  Serious: Yes (Other)
  Sender: FDA-Public Use
  Company Number: US-ASTRAZENECA-2013SE81509

PATIENT
  Sex: Female
  Weight: 61.2 kg

DRUGS (5)
  1. DILANTIN [Suspect]
     Active Substance: PHENYTOIN
     Indication: EPILEPSY
     Route: 065
  2. CLARITIN [Suspect]
     Active Substance: LORATADINE
     Route: 065
  3. LEVOXYL [Concomitant]
     Active Substance: LEVOTHYROXINE SODIUM
     Indication: HYPOTHYROIDISM
  4. SEROQUEL [Suspect]
     Active Substance: QUETIAPINE FUMARATE
     Dosage: 600.0MG UNKNOWN
     Route: 048
  5. DILANTIN [Suspect]
     Active Substance: PHENYTOIN
     Indication: EPILEPSY
     Route: 065

REACTIONS (7)
  - Seizure [Unknown]
  - Hypothyroidism [Unknown]
  - Acute kidney injury [Unknown]
  - Paralysis [Unknown]
  - Hypertension [Unknown]
  - Convulsive threshold lowered [Unknown]
  - Tardive dyskinesia [Unknown]
